FAERS Safety Report 11319157 (Version 6)
Quarter: 2020Q1

REPORT INFORMATION
  Report Type: Spontaneous
  Country: US (occurrence: US)
  Receive Date: 20150729
  Receipt Date: 20200306
  Transmission Date: 20200409
  Serious: Yes (Death)
  Sender: FDA-Public Use
  Company Number: US-ACTELION PHARMACEUTICALS US, INC.-A-US2014-110122

PATIENT
  Age: 60 Year
  Sex: Female

DRUGS (17)
  1. SPIRIVA [Concomitant]
     Active Substance: TIOTROPIUM BROMIDE MONOHYDRATE
  2. ALEVE [Concomitant]
     Active Substance: NAPROXEN SODIUM
  3. TREPROSTINIL DIOLAMIN [Suspect]
     Active Substance: TREPROSTINIL DIOLAMINE
     Dosage: 2.5 MG, BID
     Route: 048
  4. COD LIVER OIL [Concomitant]
     Active Substance: COD LIVER OIL
  5. DEXILANT [Concomitant]
     Active Substance: DEXLANSOPRAZOLE
  6. OPSUMIT [Suspect]
     Active Substance: MACITENTAN
     Indication: PULMONARY ARTERIAL HYPERTENSION
     Dosage: 10 MG, QD
     Route: 048
     Dates: start: 20140123, end: 20200224
  7. UPTRAVI [Concomitant]
     Active Substance: SELEXIPAG
     Route: 065
  8. UPTRAVI [Concomitant]
     Active Substance: SELEXIPAG
     Dosage: 1600 MCG, BID
     Route: 048
  9. SPIRONOLACTONE. [Concomitant]
     Active Substance: SPIRONOLACTONE
  10. TREPROSTINIL DIOLAMIN [Suspect]
     Active Substance: TREPROSTINIL DIOLAMINE
     Indication: PRODUCT USED FOR UNKNOWN INDICATION
     Dosage: 2.625 MG, TID
     Route: 048
  11. FUROSEMIDE. [Concomitant]
     Active Substance: FUROSEMIDE
  12. SYMBICORT [Concomitant]
     Active Substance: BUDESONIDE\FORMOTEROL FUMARATE DIHYDRATE
  13. PROMETHAZINE - CODEINE [Concomitant]
     Active Substance: CODEINE\PROMETHAZINE
  14. METFORMIN [Concomitant]
     Active Substance: METFORMIN HYDROCHLORIDE
  15. POTASSIUM [Concomitant]
     Active Substance: POTASSIUM
  16. METOLAZONE. [Concomitant]
     Active Substance: METOLAZONE
  17. ADCIRCA [Concomitant]
     Active Substance: TADALAFIL

REACTIONS (8)
  - Epistaxis [Unknown]
  - Fatigue [Unknown]
  - Diarrhoea [Recovering/Resolving]
  - Death [Fatal]
  - Headache [Recovered/Resolved]
  - Dyspnoea [Unknown]
  - Abdominal pain upper [Unknown]
  - Palpitations [Unknown]

NARRATIVE: CASE EVENT DATE: 20141214
